FAERS Safety Report 22235411 (Version 1)
Quarter: 2023Q2

REPORT INFORMATION
  Report Type: Spontaneous
  Country: US (occurrence: None)
  Receive Date: 20230419
  Receipt Date: 20230419
  Transmission Date: 20230721
  Serious: No
  Sender: FDA-Public Use
  Company Number: None

PATIENT
  Age: 57 Year
  Sex: Female
  Weight: 119.75 kg

DRUGS (1)
  1. CIMZIA [Suspect]
     Active Substance: CERTOLIZUMAB PEGOL
     Indication: Rheumatoid arthritis
     Dosage: INJECT 400MG (2 VIALS)  SUBCUTANEOUSLY AT  WEEKS  0, 2,\T\4 AS DIRECTED.
     Route: 058
     Dates: start: 202303

REACTIONS (1)
  - Cystitis [None]
